FAERS Safety Report 10048861 (Version 1)
Quarter: 2014Q1

REPORT INFORMATION
  Report Type: Report from Study
  Country: US (occurrence: US)
  Receive Date: 20140331
  Receipt Date: 20140331
  Transmission Date: 20141002
  Serious: Yes (Hospitalization, Other)
  Sender: FDA-Public Use
  Company Number: US-ABBVIE-14P-163-1215305-00

PATIENT
  Sex: Male

DRUGS (13)
  1. HUMIRA [Suspect]
     Indication: PSORIASIS
     Route: 058
     Dates: start: 20121226, end: 201401
  2. ATORVASTATIN [Concomitant]
     Indication: BLOOD CHOLESTEROL INCREASED
  3. MULTIVITAMIN [Concomitant]
     Indication: PRODUCT USED FOR UNKNOWN INDICATION
  4. VITAMIN D [Concomitant]
     Indication: PRODUCT USED FOR UNKNOWN INDICATION
  5. CALCIUM CITRATE [Concomitant]
     Indication: PRODUCT USED FOR UNKNOWN INDICATION
  6. B COMPLEX VITAMIN [Concomitant]
     Indication: PRODUCT USED FOR UNKNOWN INDICATION
  7. FLU SHOT [Concomitant]
     Indication: PRODUCT USED FOR UNKNOWN INDICATION
  8. AMLODIPINE [Concomitant]
     Indication: PRODUCT USED FOR UNKNOWN INDICATION
  9. AMLODIPINE [Concomitant]
  10. LYRICA [Concomitant]
     Indication: NEURALGIA
  11. LYRICA [Concomitant]
     Indication: INSOMNIA
     Dosage: 75 MG IN AM AND EVENING, 150 MG AROUND 11 PM
  12. OXYCONTIN [Concomitant]
     Indication: PAIN
  13. LIDOCAINE PATCH [Concomitant]
     Indication: PAIN

REACTIONS (6)
  - Intervertebral disc protrusion [Recovering/Resolving]
  - Basal cell carcinoma [Unknown]
  - Blood pressure fluctuation [Unknown]
  - Neuralgia [Not Recovered/Not Resolved]
  - Back pain [Unknown]
  - Psoriasis [Unknown]
